FAERS Safety Report 20966641 (Version 1)
Quarter: 2022Q2

REPORT INFORMATION
  Report Type: Spontaneous
  Country: US (occurrence: None)
  Receive Date: 20220615
  Receipt Date: 20220615
  Transmission Date: 20220721
  Serious: Yes (Death)
  Sender: FDA-Public Use
  Company Number: None

PATIENT
  Age: 57 Year
  Sex: Male
  Weight: 73.1 kg

DRUGS (13)
  1. DUVELISIB [Suspect]
     Active Substance: DUVELISIB
     Indication: Tonsil cancer
     Dosage: 25 MG BID ORAL?
     Route: 048
     Dates: start: 20220430, end: 20220527
  2. DOCETAXEL [Suspect]
     Active Substance: DOCETAXEL
     Indication: Tonsil cancer
     Dosage: 56MG/M2 Q21D IV?
     Route: 042
     Dates: start: 20220506, end: 20220525
  3. COLCHICINE [Concomitant]
  4. DEXAMETHASONE [Concomitant]
  5. FENTANYL [Concomitant]
  6. LACTULOSE [Concomitant]
  7. LEVOTHYROXINE SODIUM [Concomitant]
  8. OMEPRAZOLE [Concomitant]
  9. ONDANSETRON HCI [Concomitant]
  10. OXYCODON HCI [Concomitant]
  11. POLYEHLYLENE GLYCOL [Concomitant]
  12. PROCHLORPERAZINE MALEATE [Concomitant]
  13. SULFAMETHOXAZOLE/TRIMETHOPRIM [Concomitant]

REACTIONS (9)
  - Hypoxia [None]
  - Pleural effusion [None]
  - Atrial flutter [None]
  - Atrial fibrillation [None]
  - Dehydration [None]
  - Lung disorder [None]
  - Acute respiratory failure [None]
  - Hypercapnia [None]
  - Pneumonia [None]

NARRATIVE: CASE EVENT DATE: 20220614
